FAERS Safety Report 8242606-8 (Version None)
Quarter: 2012Q1

REPORT INFORMATION
  Report Type: 
  Country: None (occurrence: None)
  Receive Date: 20120329
  Receipt Date: 20120326
  Transmission Date: 20120608
  Serious: Yes (Death, Other)
  Sender: FDA-Public Use
  Company Number: PHHY2012JP021882

PATIENT
  Sex: Female

DRUGS (3)
  1. ZOLEDRONOC ACID [Suspect]
     Indication: METASTASIS
     Dates: start: 20060601
  2. PAMIDRONATE DISODIUM [Suspect]
     Indication: METASTASIS
     Dates: start: 20050401, end: 20060501
  3. ZOLEDRONOC ACID [Suspect]
     Indication: BREAST CANCER
     Dates: start: 20080101

REACTIONS (8)
  - OSTEONECROSIS OF JAW [None]
  - NEOPLASM MALIGNANT [None]
  - NEOPLASM PROGRESSION [None]
  - PERIODONTITIS [None]
  - BONE DISORDER [None]
  - PAIN [None]
  - PRIMARY SEQUESTRUM [None]
  - GINGIVAL ABSCESS [None]
